FAERS Safety Report 9321879 (Version 1)
Quarter: 2013Q2

REPORT INFORMATION
  Report Type: Spontaneous
  Country: US (occurrence: None)
  Receive Date: 20130530
  Receipt Date: 20130530
  Transmission Date: 20140414
  Serious: No
  Sender: FDA-Public Use
  Company Number: None

PATIENT
  Age: 55 Year
  Sex: Male

DRUGS (1)
  1. ENBREL 50 MG [Suspect]
     Indication: PSORIATIC ARTHROPATHY
     Dosage: 50 MG QW SQ
     Route: 058
     Dates: start: 200703

REACTIONS (1)
  - Neoplasm malignant [None]
